FAERS Safety Report 25412831 (Version 1)
Quarter: 2025Q2

REPORT INFORMATION
  Report Type: Spontaneous
  Country: CN (occurrence: CN)
  Receive Date: 20250609
  Receipt Date: 20250609
  Transmission Date: 20250716
  Serious: Yes (Life-Threatening)
  Sender: FRESENIUS KABI
  Company Number: CN-FreseniusKabi-FK202507690

PATIENT
  Age: 63 Year
  Sex: Male

DRUGS (10)
  1. SMOFLIPID [Suspect]
     Active Substance: FISH OIL\MEDIUM-CHAIN TRIGLYCERIDES\OLIVE OIL\SOYBEAN OIL
     Indication: Nutritional supplementation
     Dosage: FOA-INJECTION FOR INFUSION?THERAPY START TIME: 17:07
     Route: 041
     Dates: start: 20250508, end: 20250508
  2. DEXTROSE [Suspect]
     Active Substance: DEXTROSE MONOHYDRATE
     Indication: Nutritional supplementation
     Dosage: FOA-INJECTION FOR INFUSION?THERAPY START TIME: 17:07
     Route: 041
     Dates: start: 20250508, end: 20250508
  3. VITAMINS [Suspect]
     Active Substance: VITAMINS
     Indication: Nutritional supplementation
     Dosage: FOA-INJECTION
     Route: 041
     Dates: start: 20250508, end: 20250508
  4. POTASSIUM CHLORIDE [Suspect]
     Active Substance: POTASSIUM CHLORIDE
     Indication: Nutritional supplementation
     Dosage: FOA-INJECTION
     Route: 041
     Dates: start: 20250508, end: 20250508
  5. POTASSIUM PHOSPHATE, DIBASIC\POTASSIUM PHOSPHATE, MONOBASIC [Suspect]
     Active Substance: POTASSIUM PHOSPHATE, DIBASIC\POTASSIUM PHOSPHATE, MONOBASIC
     Indication: Nutritional supplementation
     Dosage: FOA-INJECTION
     Route: 041
     Dates: start: 20250508, end: 20250508
  6. AMINO ACIDS, SOURCE UNSPECIFIED [Suspect]
     Active Substance: AMINO ACIDS, SOURCE UNSPECIFIED
     Indication: Nutritional supplementation
     Dosage: FOA-INJECTION
     Route: 041
     Dates: start: 20250508, end: 20250508
  7. VITAMINS [Suspect]
     Active Substance: VITAMINS
     Indication: Nutritional supplementation
     Dosage: FOA-INJECTION
     Route: 041
     Dates: start: 20250508, end: 20250508
  8. SODIUM CHLORIDE [Suspect]
     Active Substance: SODIUM CHLORIDE
     Indication: Nutritional supplementation
     Dosage: FOA-INJECTION
     Route: 041
     Dates: start: 20250508, end: 20250508
  9. MAGNESIUM SULFATE [Suspect]
     Active Substance: MAGNESIUM SULFATE
     Indication: Nutritional supplementation
     Dosage: FOA-INJECTION
     Route: 041
     Dates: start: 20250508, end: 20250508
  10. DEXTROSE [Suspect]
     Active Substance: DEXTROSE MONOHYDRATE
     Indication: Nutritional supplementation
     Dosage: FOA-INJECTION
     Route: 041
     Dates: start: 20250508, end: 20250508

REACTIONS (1)
  - Anaphylactic shock [Recovering/Resolving]

NARRATIVE: CASE EVENT DATE: 20250508
